FAERS Safety Report 9360224 (Version 1)
Quarter: 2013Q2

REPORT INFORMATION
  Report Type: Spontaneous
  Country: US (occurrence: None)
  Receive Date: 20130620
  Receipt Date: 20130620
  Transmission Date: 20140414
  Serious: Yes (Life-Threatening, Hospitalization)
  Sender: FDA-Public Use
  Company Number: None

PATIENT
  Age: 65 Year
  Sex: Male
  Weight: 53.3 kg

DRUGS (2)
  1. ALBUTEROL [Suspect]
     Indication: CHRONIC OBSTRUCTIVE PULMONARY DISEASE
     Route: 055
     Dates: start: 20130116, end: 20130612
  2. ALBUTEROL [Suspect]
     Indication: DYSPNOEA
     Route: 055
     Dates: start: 20130116, end: 20130612

REACTIONS (2)
  - Tachycardia [None]
  - Dyspnoea [None]
